FAERS Safety Report 4710858-4 (Version None)
Quarter: 2005Q3

REPORT INFORMATION
  Report Type: 
  Country: None (occurrence: None)
  Receive Date: 20050708
  Receipt Date: 20050630
  Transmission Date: 20060218
  Serious: Yes (Death)
  Sender: FDA-Public Use
  Company Number: 05-05-0923

PATIENT
  Age: 48 Year
  Sex: Male

DRUGS (3)
  1. CLOZAPINE [Suspect]
     Indication: SCHIZOPHRENIA
     Dosage: 150MG  QAM  ORAL;  300MG  QHS  ORAL
     Route: 048
     Dates: start: 19991101, end: 20050401
  2. LOXITANE [Concomitant]
  3. DEPAKOTE [Concomitant]

REACTIONS (2)
  - CONGESTIVE CARDIOMYOPATHY [None]
  - OBESITY [None]
